FAERS Safety Report 8244654-0 (Version None)
Quarter: 2012Q1

REPORT INFORMATION
  Report Type: 
  Country: None (occurrence: None)
  Receive Date: 20120329
  Receipt Date: 20120117
  Transmission Date: 20120608
  Serious: No
  Sender: FDA-Public Use
  Company Number: US-MYLANLABS-2011S1025186

PATIENT
  Age: 54 Year
  Sex: Female

DRUGS (9)
  1. FENTANYL-100 [Suspect]
     Indication: PAIN IN EXTREMITY
     Dosage: Q72H
     Route: 062
     Dates: start: 20080101
  2. ASKINA DERM FILM DRESSING [Suspect]
     Dosage: Q72H
     Route: 062
     Dates: start: 20080101
  3. FENTANYL-100 [Suspect]
     Dosage: Q72H
     Route: 062
     Dates: start: 20080101
  4. FENTANYL-100 [Suspect]
     Dosage: Q72HR
     Route: 062
  5. FENTANYL-100 [Suspect]
     Dosage: Q72H
     Route: 062
     Dates: start: 20080101
  6. FENTANYL-100 [Suspect]
     Dosage: Q72HR
     Route: 062
  7. FENTANYL-100 [Suspect]
     Indication: MIGRAINE
     Dosage: Q72H
     Route: 062
     Dates: start: 20080101
  8. FENTANYL-100 [Suspect]
     Dosage: Q72H
     Route: 062
     Dates: start: 20080101
  9. FENTANYL-100 [Suspect]
     Dosage: Q72H
     Route: 062
     Dates: start: 20080101

REACTIONS (2)
  - APPLICATION SITE ERYTHEMA [None]
  - DRUG INEFFECTIVE [None]
